FAERS Safety Report 20096798 (Version 1)
Quarter: 2021Q4

REPORT INFORMATION
  Report Type: Spontaneous
  Country: US (occurrence: None)
  Receive Date: 20211122
  Receipt Date: 20211122
  Transmission Date: 20220303
  Serious: No
  Sender: FDA-Public Use
  Company Number: None

PATIENT
  Age: 44 Year
  Sex: Male
  Weight: 131 kg

DRUGS (1)
  1. ACETAMINOPHEN AND CODEINE [Suspect]
     Active Substance: ACETAMINOPHEN\CODEINE PHOSPHATE
     Indication: Pain
     Dosage: OTHER QUANTITY : 60/300 MG;?FREQUENCY : 4 TIMES A DAY;?
     Route: 048
     Dates: start: 20210829, end: 20210830

REACTIONS (2)
  - Angioedema [None]
  - Swelling [None]

NARRATIVE: CASE EVENT DATE: 20210830
